FAERS Safety Report 12714152 (Version 1)
Quarter: 2016Q3

REPORT INFORMATION
  Report Type: Spontaneous
  Country: US (occurrence: US)
  Receive Date: 20160905
  Receipt Date: 20160905
  Transmission Date: 20161109
  Serious: No
  Sender: FDA-Public Use
  Company Number: US-JAZZ-2016-US-008672

PATIENT
  Sex: Female

DRUGS (11)
  1. AMBIEN [Concomitant]
     Active Substance: ZOLPIDEM TARTRATE
  2. XYREM [Suspect]
     Active Substance: SODIUM OXYBATE
     Indication: NARCOLEPSY
     Dosage: 2.2 G, BID
     Route: 048
     Dates: start: 201604, end: 201605
  3. TANZEUM [Concomitant]
     Active Substance: ALBIGLUTIDE
  4. ADDERALL [Concomitant]
     Active Substance: AMPHETAMINE ASPARTATE\AMPHETAMINE SULFATE\DEXTROAMPHETAMINE SACCHARATE\DEXTROAMPHETAMINE SULFATE
  5. XYREM [Suspect]
     Active Substance: SODIUM OXYBATE
     Dosage: 3 G, BID
     Route: 048
     Dates: start: 201605
  6. BUSPIRONE HCL [Concomitant]
     Active Substance: BUSPIRONE HYDROCHLORIDE
  7. LISINOPRIL. [Concomitant]
     Active Substance: LISINOPRIL
  8. MEDROXYPROGESTERONE [Concomitant]
     Active Substance: MEDROXYPROGESTERONE
  9. VESICARE [Concomitant]
     Active Substance: SOLIFENACIN SUCCINATE
  10. GABAPENTIN. [Concomitant]
     Active Substance: GABAPENTIN
  11. LYRICA [Concomitant]
     Active Substance: PREGABALIN

REACTIONS (2)
  - Asthenia [Unknown]
  - Wrong technique in product usage process [Unknown]
